FAERS Safety Report 5371015-4 (Version None)
Quarter: 2007Q2

REPORT INFORMATION
  Report Type: 
  Country: None (occurrence: None)
  Receive Date: 20070622
  Receipt Date: 20070613
  Transmission Date: 20071010
  Serious: Yes (Hospitalization)
  Sender: FDA-Public Use
  Company Number: 2007-02841

PATIENT
  Age: 66 Year
  Sex: Male
  Weight: 69 kg

DRUGS (2)
  1. FUROSEMIDE (WATSON LABORATORIES)(FUROSEMIDE) TABLET, 40MG [Suspect]
     Indication: OEDEMA PERIPHERAL
     Dosage: 1 TABLET, UNKNOWN, ORAL
     Route: 048
     Dates: start: 20030201
  2. FUROSEMIDE (WATSON LABORATORIES)(FUROSEMIDE) TABLET, 40MG [Suspect]
     Indication: POST PROCEDURAL COMPLICATION
     Dosage: 1 TABLET, UNKNOWN, ORAL
     Route: 048
     Dates: start: 20030201

REACTIONS (3)
  - CONDITION AGGRAVATED [None]
  - DRUG INEFFECTIVE [None]
  - VITAMIN B1 DEFICIENCY [None]
